FAERS Safety Report 5008601-7 (Version None)
Quarter: 2006Q2

REPORT INFORMATION
  Report Type: 
  Country: None (occurrence: None)
  Receive Date: 20060523
  Receipt Date: 20060512
  Transmission Date: 20061013
  Serious: Yes (Hospitalization)
  Sender: FDA-Public Use
  Company Number: BR-ROCHE-448015

PATIENT
  Age: 25 Year
  Sex: Female
  Weight: 62 kg

DRUGS (4)
  1. RIVOTRIL [Suspect]
     Indication: DEPRESSION
     Route: 048
     Dates: start: 20060511, end: 20060511
  2. RIVOTRIL [Suspect]
     Route: 048
     Dates: start: 20060428, end: 20060510
  3. ALPRAZOLAM [Suspect]
     Indication: ANXIETY
     Route: 048
     Dates: start: 20060511, end: 20060511
  4. ALPRAZOLAM [Suspect]
     Route: 048
     Dates: start: 20060428, end: 20060510

REACTIONS (4)
  - DIFFICULTY IN WALKING [None]
  - DIZZINESS [None]
  - INCORRECT DOSE ADMINISTERED [None]
  - SOMNOLENCE [None]
